FAERS Safety Report 13747136 (Version 27)
Quarter: 2024Q4

REPORT INFORMATION
  Report Type: Spontaneous
  Country: FR (occurrence: FR)
  Receive Date: 20170712
  Receipt Date: 20241111
  Transmission Date: 20250114
  Serious: Yes (Hospitalization, Congenital Anomaly, Other)
  Sender: JOHNSON AND JOHNSON
  Company Number: None

PATIENT
  Age: 0 Year
  Sex: Female
  Weight: 2.2 kg

DRUGS (13)
  1. DARUNAVIR [Suspect]
     Active Substance: DARUNAVIR
     Indication: HIV infection
     Route: 064
     Dates: start: 20160501, end: 20170129
  2. NORVIR [Suspect]
     Active Substance: RITONAVIR
     Indication: HIV infection
     Dosage: THE CUMULATIVE DOSE WAS 275 UNITS.
     Route: 064
     Dates: start: 20160501, end: 20170129
  3. NORVIR [Suspect]
     Active Substance: RITONAVIR
     Indication: Foetal exposure during pregnancy
  4. KIVEXA [Suspect]
     Active Substance: ABACAVIR SULFATE\LAMIVUDINE
     Indication: HIV infection
     Dosage: 600MG/300 MG
     Route: 064
     Dates: start: 20160501, end: 20170129
  5. KIVEXA [Suspect]
     Active Substance: ABACAVIR SULFATE\LAMIVUDINE
     Indication: Foetal exposure during pregnancy
  6. REYATAZ [Suspect]
     Active Substance: ATAZANAVIR SULFATE
     Indication: HIV infection
     Route: 064
     Dates: start: 20160501, end: 20170129
  7. REYATAZ [Suspect]
     Active Substance: ATAZANAVIR SULFATE
     Indication: Foetal exposure during pregnancy
  8. VIRAMUNE [Suspect]
     Active Substance: NEVIRAPINE
     Indication: Prophylaxis against HIV infection
     Route: 064
     Dates: start: 20170129, end: 20170212
  9. EPZICOM [Suspect]
     Active Substance: ABACAVIR SULFATE\LAMIVUDINE
     Indication: HIV infection
     Route: 064
     Dates: start: 20160501, end: 20170129
  10. EPZICOM [Suspect]
     Active Substance: ABACAVIR SULFATE\LAMIVUDINE
     Indication: Foetal exposure during pregnancy
  11. NEVIRAPINE [Suspect]
     Active Substance: NEVIRAPINE
     Indication: Prophylaxis against HIV infection
     Route: 064
  12. NEVIRAPINE [Suspect]
     Active Substance: NEVIRAPINE
     Indication: Prophylaxis against HIV infection
  13. NEVIRAPINE [Suspect]
     Active Substance: NEVIRAPINE
     Indication: Foetal exposure during pregnancy

REACTIONS (12)
  - Dilatation ventricular [Unknown]
  - Cerebral ventricle dilatation [Unknown]
  - Foetal growth restriction [Recovering/Resolving]
  - Dermatitis exfoliative generalised [Unknown]
  - Breast disorder [Unknown]
  - Eosinophilia [Not Recovered/Not Resolved]
  - Acoustic stimulation tests abnormal [Unknown]
  - Congenital naevus [Not Recovered/Not Resolved]
  - Low set ears [Unknown]
  - Supernumerary nipple [Unknown]
  - Foetal exposure during pregnancy [Recovered/Resolved]
  - Left ventricular dilatation [Unknown]

NARRATIVE: CASE EVENT DATE: 20170129
